FAERS Safety Report 6172315-0 (Version None)
Quarter: 2009Q2

REPORT INFORMATION
  Report Type: 
  Country: None (occurrence: None)
  Receive Date: 20090429
  Receipt Date: 20080618
  Transmission Date: 20091009
  Serious: No
  Sender: FDA-Public Use
  Company Number: A0719150A

PATIENT
  Age: 70 Year
  Sex: Female
  Weight: 45.5 kg

DRUGS (2)
  1. AMERGE [Suspect]
     Indication: MIGRAINE
     Dosage: 2.5MG AS REQUIRED
     Route: 048
  2. CORTIFOAM [Concomitant]

REACTIONS (2)
  - DRUG INEFFECTIVE [None]
  - PRODUCT QUALITY ISSUE [None]
